FAERS Safety Report 8950791 (Version 1)
Quarter: 2012Q4

REPORT INFORMATION
  Report Type: Spontaneous
  Country: US (occurrence: None)
  Receive Date: 20121128
  Receipt Date: 20121128
  Transmission Date: 20130627
  Serious: Yes (Other)
  Sender: FDA-Public Use
  Company Number: FK201203459

PATIENT
  Sex: Female

DRUGS (3)
  1. MAGNESIUM SULFATE [Suspect]
     Indication: DEHYDRATION
     Dates: start: 20121019, end: 20121019
  2. MAGNESIUM SULFATE [Suspect]
     Indication: ARRHYTHMIA
     Dates: start: 20121019, end: 20121019
  3. SODIUM CHLORIDE [Suspect]
     Dates: start: 20121019, end: 20121019

REACTIONS (3)
  - Pyrexia [None]
  - Rash [None]
  - Infusion related reaction [None]
